FAERS Safety Report 23573092 (Version 1)
Quarter: 2024Q1

REPORT INFORMATION
  Report Type: Report from Study
  Country: US (occurrence: US)
  Receive Date: 20240227
  Receipt Date: 20240227
  Transmission Date: 20240410
  Serious: Yes (Other)
  Sender: FDA-Public Use
  Company Number: US-ABBVIE-5653822

PATIENT
  Age: 88 Year
  Sex: Female

DRUGS (1)
  1. SKYRIZI [Suspect]
     Active Substance: RISANKIZUMAB-RZAA
     Indication: Psoriatic arthropathy
     Route: 058
     Dates: start: 20230313

REACTIONS (5)
  - Skin cancer [Recovering/Resolving]
  - Discomfort [Recovering/Resolving]
  - Spinal osteoarthritis [Not Recovered/Not Resolved]
  - Gait disturbance [Recovering/Resolving]
  - Suture rupture [Recovered/Resolved]

NARRATIVE: CASE EVENT DATE: 20240101
